FAERS Safety Report 5187985-3 (Version None)
Quarter: 2006Q4

REPORT INFORMATION
  Report Type: 
  Country: None (occurrence: None)
  Receive Date: 20061215
  Receipt Date: 20061215
  Transmission Date: 20070319
  Serious: Yes (Death, Hospitalization)
  Sender: FDA-Public Use
  Company Number: None

PATIENT
  Sex: Female
  Weight: 52.1637 kg

DRUGS (3)
  1. CETUXIMAB, 2MG/ML;  BRISTOL-MYERS SQUIBB [Suspect]
     Indication: BREAST CANCER
     Dosage: 648MG; 405MG   LOADING; WEEKLY   IV
     Route: 042
     Dates: start: 20060920, end: 20061018
  2. CETUXIMAB, 2MG/ML;  BRISTOL-MYERS SQUIBB [Suspect]
     Indication: BREAST CANCER
     Dosage: 648MG; 405MG   LOADING; WEEKLY   IV
     Route: 042
     Dates: start: 20060913
  3. CARBOPLATIN [Suspect]
     Indication: BREAST CANCER
     Dosage: (AUC 2)  226MG   WEEKS 1,2,3 OF 4   IV
     Route: 042
     Dates: start: 20061018

REACTIONS (10)
  - DEHYDRATION [None]
  - DIARRHOEA [None]
  - HYPOKALAEMIA [None]
  - HYPOMAGNESAEMIA [None]
  - MALIGNANT NEOPLASM PROGRESSION [None]
  - NAUSEA [None]
  - ORTHOSTATIC HYPOTENSION [None]
  - URINARY TRACT INFECTION [None]
  - VERTIGO POSITIONAL [None]
  - VOMITING [None]
